FAERS Safety Report 7309567-7 (Version None)
Quarter: 2011Q1

REPORT INFORMATION
  Report Type: 
  Country: None (occurrence: None)
  Receive Date: 20110223
  Receipt Date: 20110216
  Transmission Date: 20110831
  Serious: Yes (Hospitalization)
  Sender: FDA-Public Use
  Company Number: US-MERCK-1101USA01459

PATIENT
  Age: 74 Year
  Sex: Female

DRUGS (5)
  1. COZAAR [Suspect]
     Route: 048
  2. TOPROL-XL [Concomitant]
     Route: 065
  3. COZAAR [Suspect]
     Indication: BLOOD PRESSURE
     Route: 048
     Dates: start: 19860101
  4. SPIRONOLACTONE [Concomitant]
     Route: 065
  5. INSULIN [Concomitant]
     Route: 065

REACTIONS (4)
  - ORAL DISCOMFORT [None]
  - DIZZINESS [None]
  - DYSGEUSIA [None]
  - ADVERSE EVENT [None]
